FAERS Safety Report 7536840-X (Version None)
Quarter: 2011Q2

REPORT INFORMATION
  Report Type: 
  Country: None (occurrence: None)
  Receive Date: 20110609
  Receipt Date: 20110527
  Transmission Date: 20111010
  Serious: No
  Sender: FDA-Public Use
  Company Number: US-ACTELION-A-NJ2011-49123

PATIENT

DRUGS (7)
  1. DIOVAN [Concomitant]
  2. ATENOLOL [Concomitant]
  3. ALLEGRA [Concomitant]
  4. VENTAVIS [Suspect]
     Indication: PULMONARY ARTERIAL HYPERTENSION
     Dosage: 10 UNK, UNK
     Route: 055
     Dates: start: 20101201
  5. COUMADIN [Concomitant]
  6. ADCIRCA [Concomitant]
  7. TRACLEER [Suspect]
     Indication: PULMONARY ARTERIAL HYPERTENSION
     Dosage: 125 MG, BID
     Route: 048

REACTIONS (2)
  - ARTHRALGIA [None]
  - EXOSTOSIS [None]
